FAERS Safety Report 10866264 (Version 1)
Quarter: 2015Q1

REPORT INFORMATION
  Report Type: Spontaneous
  Country: JP (occurrence: None)
  Receive Date: 20150220
  Receipt Date: 20150220
  Transmission Date: 20150721
  Serious: Yes (Other)
  Sender: FDA-Public Use
  Company Number: 2015-000271

PATIENT
  Age: 79 Year
  Sex: Male

DRUGS (1)
  1. BENET (RISEDRONATE SODIUM) TABLET, UNKMG [Suspect]
     Active Substance: RISEDRONATE SODIUM
     Route: 048

REACTIONS (1)
  - Small intestine carcinoma [None]
